FAERS Safety Report 7325172-0 (Version None)
Quarter: 2011Q1

REPORT INFORMATION
  Report Type: 
  Country: None (occurrence: None)
  Receive Date: 20110302
  Receipt Date: 20110222
  Transmission Date: 20110831
  Serious: Yes (Other)
  Sender: FDA-Public Use
  Company Number: FR-ASTELLAS-2011EU000889

PATIENT
  Sex: Female

DRUGS (5)
  1. CELLCEPT [Concomitant]
     Dosage: UNK
     Route: 065
  2. TACROLIMUS [Suspect]
     Indication: LIVER TRANSPLANT
     Dosage: UNK
     Route: 065
     Dates: start: 20100101
  3. KARDEGIC [Concomitant]
     Dosage: UNK
     Route: 065
  4. COUMADIN [Concomitant]
     Dosage: UNK
     Route: 065
  5. PROGRAF [Suspect]
     Indication: LIVER TRANSPLANT
     Dosage: UNK
     Route: 065

REACTIONS (5)
  - CEREBROVASCULAR ACCIDENT [None]
  - DIPLOPIA [None]
  - PLATELET COUNT INCREASED [None]
  - HYPOTHYROIDISM [None]
  - PARAESTHESIA [None]
